FAERS Safety Report 19047912 (Version 2)
Quarter: 2021Q2

REPORT INFORMATION
  Report Type: Spontaneous
  Country: BG (occurrence: BG)
  Receive Date: 20210323
  Receipt Date: 20210409
  Transmission Date: 20210717
  Serious: Yes (Other)
  Sender: FDA-Public Use
  Company Number: BG-BAYER-2021-105916

PATIENT
  Age: 78 Year

DRUGS (3)
  1. NEXAVAR [Suspect]
     Active Substance: SORAFENIB
     Indication: HEPATOCELLULAR CARCINOMA
     Dosage: 400 MG, BID FOR 30 DAYS
     Dates: start: 201809
  2. NEXAVAR [Suspect]
     Active Substance: SORAFENIB
     Indication: HEPATOCELLULAR CARCINOMA
     Dosage: 200 MG, BID
     Dates: end: 202009
  3. STIVARGA [Suspect]
     Active Substance: REGORAFENIB
     Indication: HEPATOCELLULAR CARCINOMA
     Dosage: DAILY DOSE 160 MG FOR 3 WEEKS, WITH 1 WEEK OFF
     Route: 048
     Dates: start: 202012

REACTIONS (3)
  - Adverse drug reaction [None]
  - Hepatocellular carcinoma [None]
  - Fatigue [None]

NARRATIVE: CASE EVENT DATE: 20190610
